FAERS Safety Report 10196976 (Version 1)
Quarter: 2014Q2

REPORT INFORMATION
  Report Type: Spontaneous
  Country: US (occurrence: None)
  Receive Date: 20140523
  Receipt Date: 20140523
  Transmission Date: 20141212
  Serious: Yes (Hospitalization)
  Sender: FDA-Public Use
  Company Number: None

PATIENT
  Age: 87 Year
  Sex: Male
  Weight: 69.5 kg

DRUGS (1)
  1. WARFARIN [Suspect]
     Indication: ATRIAL FIBRILLATION
     Route: 048
     Dates: start: 20140115, end: 20140407

REACTIONS (9)
  - International normalised ratio increased [None]
  - Haematuria [None]
  - Disseminated intravascular coagulation [None]
  - Vitamin K decreased [None]
  - Anaemia [None]
  - Gastric haemorrhage [None]
  - Diarrhoea [None]
  - Malaise [None]
  - Clostridium test positive [None]
